FAERS Safety Report 11972938 (Version 1)
Quarter: 2016Q1

REPORT INFORMATION
  Report Type: Not Available
  Country: US (occurrence: US)
  Receive Date: 20160128
  Receipt Date: 20160128
  Transmission Date: 20160526
  Serious: Yes (Other)
  Sender: FDA-Public Use
  Company Number: US-BEAUTYAVENUES-2016-US-000296

PATIENT
  Age: 12 Year
  Sex: Male

DRUGS (1)
  1. ANTI-BACTERIAL HAND MERRY BERRY CHRISTMAS [Suspect]
     Active Substance: ALCOHOL
     Route: 065
     Dates: start: 20160104, end: 20160104

REACTIONS (4)
  - Dyspnoea [Unknown]
  - Oropharyngeal swelling [Unknown]
  - Accidental exposure to product [None]
  - Urticaria [Recovered/Resolved]

NARRATIVE: CASE EVENT DATE: 20160104
